FAERS Safety Report 25005334 (Version 2)
Quarter: 2025Q3

REPORT INFORMATION
  Report Type: Spontaneous
  Country: EU (occurrence: EU)
  Receive Date: 20250224
  Receipt Date: 20250806
  Transmission Date: 20251021
  Serious: Yes (Congenital Anomaly, Other)
  Sender: JOHNSON AND JOHNSON
  Company Number: None

PATIENT
  Sex: Male

DRUGS (2)
  1. STELARA [Suspect]
     Active Substance: USTEKINUMAB
     Indication: Colitis ulcerative
     Route: 064
     Dates: start: 2021
  2. SALOFALK [Concomitant]
     Indication: Gastrointestinal inflammation
     Route: 064
     Dates: start: 20190919, end: 20250305

REACTIONS (3)
  - Ventricular septal defect [Not Recovered/Not Resolved]
  - Foetal exposure during pregnancy [Recovered/Resolved]
  - Jaundice neonatal [Recovered/Resolved]

NARRATIVE: CASE EVENT DATE: 20240101
